FAERS Safety Report 4833943-5 (Version None)
Quarter: 2005Q4

REPORT INFORMATION
  Report Type: 
  Country: None (occurrence: None)
  Receive Date: 20051118
  Receipt Date: 20051118
  Transmission Date: 20060501
  Serious: Yes (Hospitalization)
  Sender: FDA-Public Use
  Company Number: None

PATIENT
  Age: 52 Year
  Sex: Male

DRUGS (7)
  1. GEMCITABINE [Suspect]
     Indication: PANCREATIC CARCINOMA
     Dosage: 2060MG  WEEKLY, CYCLICAL IV DRIP
     Route: 041
     Dates: start: 20041001, end: 20050811
  2. HYZAAR [Concomitant]
  3. ALLOPURINOL [Concomitant]
  4. PRILOSEC [Concomitant]
  5. INDOMETHACIN [Concomitant]
  6. PERCOCET [Concomitant]
  7. CIPRO [Concomitant]

REACTIONS (10)
  - ANAEMIA [None]
  - DIARRHOEA [None]
  - HAEMODIALYSIS [None]
  - HAEMOLYTIC URAEMIC SYNDROME [None]
  - HYPERTENSION [None]
  - PYREXIA [None]
  - RASH [None]
  - RENAL FAILURE ACUTE [None]
  - STAPHYLOCOCCAL BACTERAEMIA [None]
  - THROMBOCYTOPENIA [None]
